FAERS Safety Report 15372983 (Version 1)
Quarter: 2018Q3

REPORT INFORMATION
  Report Type: Spontaneous
  Country: CH (occurrence: CH)
  Receive Date: 20180912
  Receipt Date: 20180912
  Transmission Date: 20181010
  Serious: Yes (Hospitalization)
  Sender: FDA-Public Use
  Company Number: CH-TEVA-2018-CH-952765

PATIENT
  Age: 57 Year
  Sex: Male
  Weight: 75 kg

DRUGS (12)
  1. ESOMEP [Concomitant]
     Active Substance: ESOMEPRAZOLE
     Dates: start: 20180716, end: 20180809
  2. MOVICOL [Concomitant]
     Active Substance: POLYETHYLENE GLYCOL 3350\POTASSIUM CHLORIDE\SODIUM BICARBONATE\SODIUM CHLORIDE
     Route: 048
     Dates: start: 20180716, end: 20180815
  3. METHADON HCL [Concomitant]
     Active Substance: METHADONE HYDROCHLORIDE
     Dosage: LONG?TERM PROGRAMME
  4. PHYSIOTENS [Concomitant]
     Active Substance: MOXONIDINE
     Route: 048
     Dates: start: 20180718
  5. TRIATEC COMP [Concomitant]
     Active Substance: HYDROCHLOROTHIAZIDE\RAMIPRIL
     Dosage: BEFORE TRIATEC 5 MG, 0?0?1 SINCE 15 JULY 2018
     Route: 048
     Dates: start: 20180725
  6. TEMESTA EXPIDET [Concomitant]
     Active Substance: LORAZEPAM
     Route: 048
     Dates: start: 20180715
  7. CO?AMOXI [Suspect]
     Active Substance: AMOXICILLIN\CLAVULANATE POTASSIUM
     Dates: start: 20180806, end: 20180807
  8. FRAGMIN [Concomitant]
     Active Substance: DALTEPARIN SODIUM
     Route: 058
     Dates: start: 20180715
  9. CONCOR [Concomitant]
     Active Substance: BISOPROLOL FUMARATE
     Route: 048
     Dates: start: 20180727
  10. CO?AMOXI [Suspect]
     Active Substance: AMOXICILLIN\CLAVULANATE POTASSIUM
     Route: 041
     Dates: start: 20180804, end: 20180806
  11. ATORVASTATIN PFIZER [Suspect]
     Active Substance: ATORVASTATIN
     Route: 048
     Dates: start: 20180714, end: 20180806
  12. KALIUM HAUSMANN KCL [Concomitant]
     Route: 048
     Dates: end: 20180812

REACTIONS (1)
  - Drug-induced liver injury [Recovering/Resolving]

NARRATIVE: CASE EVENT DATE: 20180805
